FAERS Safety Report 5574039-7 (Version None)
Quarter: 2007Q4

REPORT INFORMATION
  Report Type: 
  Country: None (occurrence: None)
  Receive Date: 20071221
  Receipt Date: 20071207
  Transmission Date: 20080405
  Serious: Yes (Other)
  Sender: FDA-Public Use
  Company Number: PHBS2007PE19540

PATIENT
  Age: 72 Year
  Sex: Female

DRUGS (1)
  1. VERTEPORFIN (BATCH #: UNKNOWN) [Suspect]
     Indication: MACULAR DEGENERATION
     Dosage: IV
     Route: 042
     Dates: start: 20070618, end: 20070618

REACTIONS (1)
  - RETINAL TEAR [None]
